FAERS Safety Report 5376097-1 (Version None)
Quarter: 2007Q3

REPORT INFORMATION
  Report Type: 
  Country: None (occurrence: None)
  Receive Date: 20070702
  Receipt Date: 20070628
  Transmission Date: 20080115
  Serious: Yes (Hospitalization, Other)
  Sender: FDA-Public Use
  Company Number: A0660704A

PATIENT
  Age: 2 Month
  Sex: Female

DRUGS (2)
  1. ZANTAC [Suspect]
     Dosage: 10MGK TWICE PER DAY
     Route: 048
  2. NO CONCURRENT MEDICATION [Concomitant]

REACTIONS (3)
  - CONVULSION [None]
  - DEVELOPMENTAL DELAY [None]
  - OVERDOSE [None]
